FAERS Safety Report 4502161-2 (Version None)
Quarter: 2004Q4

REPORT INFORMATION
  Report Type: 
  Country: None (occurrence: None)
  Receive Date: 20041116
  Receipt Date: 20041018
  Transmission Date: 20050328
  Serious: Yes (Hospitalization)
  Sender: FDA-Public Use
  Company Number: DE-MERCK-0410DEU00520

PATIENT
  Age: 61 Year
  Sex: Male
  Weight: 75 kg

DRUGS (15)
  1. VIOXX [Suspect]
     Indication: PAIN
     Route: 048
     Dates: start: 20030915, end: 20031001
  2. VIOXX [Suspect]
     Route: 048
     Dates: end: 20030914
  3. VIOXX [Suspect]
     Indication: OSTEOPOROSIS
     Route: 048
     Dates: start: 20030915, end: 20031001
  4. VIOXX [Suspect]
     Route: 048
     Dates: end: 20030914
  5. THEOPHYLLINE [Concomitant]
     Indication: CHRONIC OBSTRUCTIVE AIRWAYS DISEASE
     Route: 065
     Dates: start: 20010425
  6. SILIBININ [Concomitant]
     Indication: CIRRHOSIS ALCOHOLIC
     Route: 065
     Dates: start: 20010425
  7. TRAMADOL HYDROCHLORIDE [Concomitant]
     Indication: PAIN
     Route: 065
     Dates: start: 20030101
  8. TRAMADOL HYDROCHLORIDE [Concomitant]
     Indication: OSTEOPOROSIS
     Route: 065
     Dates: start: 20030101
  9. SPIRONOLACTONE [Concomitant]
     Indication: HEPATIC CIRRHOSIS
     Route: 065
     Dates: start: 20010411
  10. SPIRONOLACTONE [Concomitant]
     Indication: ASCITES
     Route: 065
     Dates: start: 20010411
  11. ATENOLOL [Concomitant]
     Indication: TACHYCARDIA
     Route: 065
     Dates: start: 20010607
  12. OIL OF LAVENDER [Concomitant]
     Indication: CHRONIC OBSTRUCTIVE AIRWAYS DISEASE
     Route: 065
     Dates: start: 20011018
  13. FOSAMAX [Concomitant]
     Indication: OSTEOPOROSIS
     Route: 048
     Dates: start: 20030805
  14. CALCITONIN [Concomitant]
     Route: 065
     Dates: start: 20030707
  15. CALCIUM (UNSPECIFIED) [Concomitant]
     Route: 065
     Dates: start: 20030414

REACTIONS (3)
  - CEREBRAL ARTERY OCCLUSION [None]
  - CEREBRAL INFARCTION [None]
  - NICOTINE DEPENDENCE [None]
